FAERS Safety Report 9801414 (Version 1)
Quarter: 2014Q1

REPORT INFORMATION
  Report Type: Spontaneous
  Country: FR (occurrence: FR)
  Receive Date: 20140107
  Receipt Date: 20140107
  Transmission Date: 20141002
  Serious: Yes (Hospitalization)
  Sender: FDA-Public Use
  Company Number: FR-PFIZER INC-2014002860

PATIENT
  Age: 79 Year
  Sex: Male

DRUGS (7)
  1. CORDARONE [Suspect]
     Indication: ATRIAL FIBRILLATION
     Dosage: 200 MG, DAILY
     Route: 048
     Dates: end: 201311
  2. PERINDOPRIL [Concomitant]
     Dosage: UNK
  3. BISOCE [Concomitant]
     Dosage: UNK
  4. MOVICOL [Concomitant]
     Dosage: UNK
  5. PRAZEPAM [Concomitant]
     Dosage: UNK
  6. PREVISCAN [Concomitant]
     Dosage: UNK
  7. DOLIPRANE [Concomitant]
     Dosage: UNK

REACTIONS (2)
  - Hyperthyroidism [Unknown]
  - Lung infection [Recovered/Resolved]
